FAERS Safety Report 4352458-4 (Version None)
Quarter: 2004Q2

REPORT INFORMATION
  Report Type: 
  Country: None (occurrence: None)
  Receive Date: 20040428
  Receipt Date: 20040420
  Transmission Date: 20050107
  Serious: Yes (Hospitalization)
  Sender: FDA-Public Use
  Company Number: 2004193973FR

PATIENT
  Age: 32 Year
  Sex: Female

DRUGS (4)
  1. DOXORUBICIN HCL [Suspect]
     Indication: LYMPHOMA
     Dosage: 50 MG/M2, IV
     Route: 042
     Dates: start: 20031126, end: 20031126
  2. ONCOVIN [Suspect]
     Indication: LYMPHOMA
     Dosage: 1.4 MG/M2, IV
     Route: 042
     Dates: start: 20031126, end: 20031126
  3. PREDNISONE TAB [Suspect]
     Indication: LYMPHOMA
     Dosage: 1.5 MG/KG, ORAL
     Route: 048
     Dates: start: 20031121
  4. ACETAMINOPHEN [Concomitant]

REACTIONS (6)
  - ABORTION INDUCED [None]
  - COMPLICATIONS OF MATERNAL EXPOSURE TO THERAPEUTIC DRUGS [None]
  - DRUG EXPOSURE DURING PREGNANCY [None]
  - HYPERHIDROSIS [None]
  - HYPOTENSION [None]
  - PYREXIA [None]
